FAERS Safety Report 21462324 (Version 1)
Quarter: 2022Q4

REPORT INFORMATION
  Report Type: Spontaneous
  Country: PL (occurrence: PL)
  Receive Date: 20221016
  Receipt Date: 20221016
  Transmission Date: 20230112
  Serious: Yes (Disabling, Other)
  Sender: FDA-Public Use
  Company Number: None

PATIENT
  Age: 67 Year
  Sex: Female

DRUGS (4)
  1. CLOPIDOGREL BISULFATE [Suspect]
     Active Substance: CLOPIDOGREL BISULFATE
     Dosage: 75 MG, QD
     Route: 048
     Dates: end: 20201229
  2. OMEPRAZOLE [Concomitant]
     Active Substance: OMEPRAZOLE
     Dosage: 1X1
     Route: 048
  3. LACIDIPINE [Concomitant]
     Active Substance: LACIDIPINE
     Dosage: 4 MG, QD
     Route: 048
  4. PERINDOPRIL [Concomitant]
     Active Substance: PERINDOPRIL
     Dosage: 5 MG, QD
     Route: 048

REACTIONS (2)
  - Hemiparesis [Unknown]
  - Cerebral haematoma [Unknown]

NARRATIVE: CASE EVENT DATE: 20201229
